FAERS Safety Report 5051313-4 (Version None)
Quarter: 2006Q3

REPORT INFORMATION
  Report Type: 
  Country: None (occurrence: None)
  Receive Date: 20060714
  Receipt Date: 20060612
  Transmission Date: 20061208
  Serious: Yes (Other)
  Sender: FDA-Public Use
  Company Number: 2006AC01128

PATIENT
  Age: 754 Month
  Sex: Female
  Weight: 73 kg

DRUGS (2)
  1. CRESTOR [Suspect]
     Indication: HYPERCHOLESTEROLAEMIA
     Route: 048
     Dates: start: 20031217, end: 20050322
  2. COZAAR [Concomitant]
     Dates: start: 20030703

REACTIONS (1)
  - POLYMYALGIA RHEUMATICA [None]
